FAERS Safety Report 22102155 (Version 1)
Quarter: 2023Q1

REPORT INFORMATION
  Report Type: Spontaneous
  Country: JP (occurrence: JP)
  Receive Date: 20230316
  Receipt Date: 20230316
  Transmission Date: 20230418
  Serious: Yes (Hospitalization)
  Sender: FDA-Public Use
  Company Number: JP-NATCOUSA-2023-NATCOUSA-000138

PATIENT
  Age: 57 Year
  Sex: Male

DRUGS (1)
  1. OSELTAMIVIR PHOSPHATE [Suspect]
     Active Substance: OSELTAMIVIR PHOSPHATE
     Indication: Influenza
     Route: 065

REACTIONS (2)
  - Influenza [Recovering/Resolving]
  - Disease progression [Recovering/Resolving]
